FAERS Safety Report 12297899 (Version 1)
Quarter: 2016Q2

REPORT INFORMATION
  Report Type: Spontaneous
  Country: JP (occurrence: JP)
  Receive Date: 20160422
  Receipt Date: 20160422
  Transmission Date: 20160815
  Serious: Yes (Death, Life-Threatening)
  Sender: FDA-Public Use
  Company Number: JP-PFIZER INC-2016146269

PATIENT
  Age: 77 Year
  Sex: Male
  Weight: 43.4 kg

DRUGS (4)
  1. ZYVOX [Suspect]
     Active Substance: LINEZOLID
     Indication: STAPHYLOCOCCAL INFECTION
     Dosage: 600 MG, 1X/DAY
     Route: 041
     Dates: start: 20160301, end: 20160307
  2. CLINDAMYCIN [Concomitant]
     Active Substance: CLINDAMYCIN\CLINDAMYCIN PHOSPHATE
     Indication: PNEUMONIA STAPHYLOCOCCAL
  3. PANIPENEM [Concomitant]
     Active Substance: PANIPENEM
     Indication: PNEUMONIA STAPHYLOCOCCAL
  4. RIFAMPIN. [Concomitant]
     Active Substance: RIFAMPIN
     Indication: PNEUMONIA STAPHYLOCOCCAL

REACTIONS (2)
  - Bone marrow failure [Recovered/Resolved]
  - Pneumonia [Fatal]

NARRATIVE: CASE EVENT DATE: 20160303
